FAERS Safety Report 13232467 (Version 1)
Quarter: 2017Q1

REPORT INFORMATION
  Report Type: Report from Study
  Country: None (occurrence: US)
  Receive Date: 20170214
  Receipt Date: 20170214
  Transmission Date: 20170428
  Serious: Yes (Hospitalization, Other)
  Sender: FDA-Public Use
  Company Number: US-AMAG PHARMACEUTICALS, INC.-AMAG201601418

PATIENT

DRUGS (4)
  1. PRENATAL VITAMINS [Suspect]
     Active Substance: VITAMINS
  2. MAKENA [Suspect]
     Active Substance: HYDROXYPROGESTERONE CAPROATE
     Indication: PRODUCT USED FOR UNKNOWN INDICATION
     Dosage: UNK UNK, WEEKLY
     Route: 065
     Dates: start: 20160426
  3. HUMALOG [Concomitant]
     Active Substance: INSULIN LISPRO
  4. HUMULIN NOS [Concomitant]
     Active Substance: INSULIN HUMAN

REACTIONS (3)
  - Uterine contractions during pregnancy [Not Recovered/Not Resolved]
  - Polyhydramnios [Unknown]
  - Premature labour [Unknown]

NARRATIVE: CASE EVENT DATE: 2016
